FAERS Safety Report 9138450 (Version 1)
Quarter: 2013Q1

REPORT INFORMATION
  Report Type: Spontaneous
  Country: BR (occurrence: None)
  Receive Date: 20130227
  Receipt Date: 20130227
  Transmission Date: 20140127
  Serious: Yes (Death, Other)
  Sender: FDA-Public Use
  Company Number: ENTC2013-0061

PATIENT
  Age: 88 Year
  Sex: Female

DRUGS (1)
  1. STALEVO [Suspect]
     Indication: PARKINSON^S DISEASE
     Dosage: 4 TO 5 TABLETS
     Route: 048

REACTIONS (3)
  - Pancreatitis acute [None]
  - Cardiac arrest [None]
  - Coordination abnormal [None]
